FAERS Safety Report 23531220 (Version 1)
Quarter: 2024Q1

REPORT INFORMATION
  Report Type: Spontaneous
  Country: US (occurrence: None)
  Receive Date: 20240215
  Receipt Date: 20240215
  Transmission Date: 20240409
  Serious: Yes (Disabling)
  Sender: FDA-Public Use
  Company Number: None

PATIENT
  Age: 33 Year
  Sex: Female
  Weight: 56.25 kg

DRUGS (1)
  1. HYLENEX RECOMBINANT [Suspect]
     Active Substance: HYALURONIDASE (HUMAN RECOMBINANT)
     Indication: Specialist consultation
     Dosage: OTHER ROUTE : INJECTED INTO THE LIP;?
     Route: 050

REACTIONS (10)
  - Swelling face [None]
  - Skin texture abnormal [None]
  - Muscular weakness [None]
  - Muscle spasms [None]
  - Facial wasting [None]
  - Uterine haemorrhage [None]
  - Arthralgia [None]
  - Gingival recession [None]
  - Pain [None]
  - Burning sensation [None]

NARRATIVE: CASE EVENT DATE: 20240116
